FAERS Safety Report 9520745 (Version 1)
Quarter: 2013Q1

REPORT INFORMATION
  Report Type: Spontaneous
  Country: US (occurrence: None)
  Receive Date: 20130305
  Receipt Date: 20130305
  Transmission Date: 20140127
  Serious: Yes (Hospitalization)
  Sender: FDA-Public Use
  Company Number: 163-21880-12073278

PATIENT
  Age: 77 Year
  Sex: Female
  Weight: 68.49 kg

DRUGS (7)
  1. REVLIMID [Suspect]
     Indication: PLASMA CELL MYELOMA
     Dosage: 10 MG, 1 IN 1 D, PO
     Route: 048
     Dates: start: 20120711
  2. CALCIUM + D (OS-CAL) (UNKNOWN) [Concomitant]
  3. FISH OIL (FISH OIL) (UNKNOWN) [Concomitant]
  4. MAGNESIUM (MAGNESIUM) (UNKNOWN) [Concomitant]
  5. METFORMIN (METFORMIN) (UNKNOWN) [Concomitant]
  6. SIMVATATIN (SIMVSTATIN) (UNKNOWN) [Concomitant]
  7. VELCADE (UNKNOWN) [Concomitant]

REACTIONS (2)
  - Urinary tract infection [None]
  - Abdominal discomfort [None]
